FAERS Safety Report 7324363-2 (Version None)
Quarter: 2011Q1

REPORT INFORMATION
  Report Type: 
  Country: None (occurrence: None)
  Receive Date: 20110218
  Receipt Date: 20110211
  Transmission Date: 20110831
  Serious: Yes (Hospitalization, Other)
  Sender: FDA-Public Use
  Company Number: JPI-P-013040

PATIENT
  Age: 51 Year
  Sex: Female
  Weight: 48.5349 kg

DRUGS (1)
  1. XYREM [Suspect]
     Indication: INSOMNIA
     Dosage: 6 GM (3 GM, 2 IN 1 D), 9 GM (4/5 G,. 2 OM 1 D), TITRATING DOSE, ORAL
     Route: 048
     Dates: start: 20070730, end: 20080111

REACTIONS (11)
  - FALL [None]
  - FEELING COLD [None]
  - HIP FRACTURE [None]
  - DRUG EFFECT DECREASED [None]
  - PAIN [None]
  - WEIGHT DECREASED [None]
  - DECREASED APPETITE [None]
  - BACK INJURY [None]
  - HYPERHIDROSIS [None]
  - CONSTIPATION [None]
  - JOINT DISLOCATION [None]
